FAERS Safety Report 6089903-2 (Version None)
Quarter: 2009Q1

REPORT INFORMATION
  Report Type: 
  Country: None (occurrence: None)
  Receive Date: 20090224
  Receipt Date: 20081120
  Transmission Date: 20090719
  Serious: No
  Sender: FDA-Public Use
  Company Number: US-ABBOTT-08P-163-0489324-00

PATIENT
  Sex: Female
  Weight: 70.37 kg

DRUGS (7)
  1. SIMCOR [Suspect]
     Indication: BLOOD CHOLESTEROL
     Dates: start: 20081016, end: 20081110
  2. METOPROLOL SUCCINATE [Concomitant]
     Indication: BLOOD PRESSURE
     Dosage: 200 MG DAILY
  3. HYDROCHLOROTHIAZIDE [Concomitant]
     Indication: THYROID DISORDER
  4. LISINOPRIL [Concomitant]
     Indication: DRUG USE FOR UNKNOWN INDICATION
  5. MAMLODIEINE AMLODIPINE BESYLATE [Concomitant]
     Indication: DRUG USE FOR UNKNOWN INDICATION
  6. COSOPT [Concomitant]
     Indication: GLAUCOMA
     Dosage: 4 DROPS IN EACH EYE PER DAY
  7. XALATAN [Concomitant]
     Indication: GLAUCOMA
     Dosage: ONE DROP TO EACH EYE AT BEDTIME

REACTIONS (2)
  - JOINT RANGE OF MOTION DECREASED [None]
  - MYALGIA [None]
